FAERS Safety Report 11742109 (Version 1)
Quarter: 2015Q4

REPORT INFORMATION
  Report Type: Spontaneous
  Country: US (occurrence: US)
  Receive Date: 20151116
  Receipt Date: 20151116
  Transmission Date: 20160304
  Serious: No
  Sender: FDA-Public Use
  Company Number: US-PFIZER INC-2015374487

PATIENT
  Age: 52 Year
  Sex: Male

DRUGS (1)
  1. SUTENT [Suspect]
     Active Substance: SUNITINIB MALATE
     Indication: RENAL CANCER
     Dosage: 50 MG, DAILY (FOR 4 WEEKS)
     Route: 048

REACTIONS (7)
  - Constipation [Unknown]
  - Skin burning sensation [Unknown]
  - Ageusia [Unknown]
  - Pain of skin [Unknown]
  - Diarrhoea [Unknown]
  - Glossodynia [Unknown]
  - Dry mouth [Unknown]
